FAERS Safety Report 7883706-1 (Version None)
Quarter: 2011Q4

REPORT INFORMATION
  Report Type: 
  Country: None (occurrence: None)
  Receive Date: 20111102
  Receipt Date: 20111011
  Transmission Date: 20120403
  Serious: Yes (Other)
  Sender: FDA-Public Use
  Company Number: CA-JNJFOC-20110911386

PATIENT
  Sex: Male
  Weight: 66 kg

DRUGS (4)
  1. PURINETHOL [Concomitant]
     Route: 048
     Dates: start: 20090201
  2. REMICADE [Suspect]
     Indication: COLITIS
     Route: 042
     Dates: start: 20091010, end: 20110726
  3. PREDNISONE [Concomitant]
     Route: 048
  4. PREDNISONE [Concomitant]
     Route: 048
     Dates: start: 20090801

REACTIONS (3)
  - DISSEMINATED TUBERCULOSIS [None]
  - WEIGHT DECREASED [None]
  - HEPATIC ENZYME INCREASED [None]
